FAERS Safety Report 7651705-0 (Version None)
Quarter: 2011Q3

REPORT INFORMATION
  Report Type: 
  Country: None (occurrence: None)
  Receive Date: 20110802
  Receipt Date: 20110718
  Transmission Date: 20111222
  Serious: Yes (Other)
  Sender: FDA-Public Use
  Company Number: JP-WATSON-2011-11527

PATIENT
  Age: 52 Year
  Sex: Male

DRUGS (2)
  1. PREDNISOLONE [Suspect]
     Dosage: 40 MG/DAY
     Route: 048
  2. PREDNISOLONE [Suspect]
     Indication: SYSTEMIC LUPUS ERYTHEMATOSUS
     Dosage: TAPER DOWN TO 20 MG DAILY
     Route: 048

REACTIONS (4)
  - MUSCLE ABSCESS [None]
  - NOCARDIOSIS [None]
  - SUBCUTANEOUS ABSCESS [None]
  - BRAIN ABSCESS [None]
